FAERS Safety Report 8502935-7 (Version None)
Quarter: 2012Q3

REPORT INFORMATION
  Report Type: 
  Country: None (occurrence: None)
  Receive Date: 20120705
  Receipt Date: 20120705
  Transmission Date: 20120928
  Serious: Yes (Life-Threatening, Hospitalization)
  Sender: FDA-Public Use
  Company Number: None

PATIENT
  Age: 42 Year
  Sex: Male
  Weight: 80 kg

DRUGS (1)
  1. NARATRIPTAN [Suspect]
     Indication: MIGRAINE
     Dosage: SEVERAL TIMES WEEK PO
     Route: 048
     Dates: start: 20110101, end: 20110221

REACTIONS (8)
  - ANXIETY [None]
  - DYSPNOEA [None]
  - STENT PLACEMENT [None]
  - ELECTROCARDIOGRAM ABNORMAL [None]
  - NO THERAPEUTIC RESPONSE [None]
  - HYPERHIDROSIS [None]
  - HEART INJURY [None]
  - CHEST PAIN [None]
